FAERS Safety Report 24894872 (Version 1)
Quarter: 2025Q1

REPORT INFORMATION
  Report Type: Spontaneous
  Country: CN (occurrence: CN)
  Receive Date: 20250128
  Receipt Date: 20250128
  Transmission Date: 20250409
  Serious: Yes (Life-Threatening)
  Sender: FRESENIUS KABI
  Company Number: CN-FreseniusKabi-FK202501492

PATIENT
  Age: 6 Year
  Sex: Female
  Weight: 20 kg

DRUGS (7)
  1. PROPOFOL [Suspect]
     Active Substance: PROPOFOL
     Indication: Induction of anaesthesia
     Dosage: FOA-INJECTION?PUMP INJECTION
     Route: 042
     Dates: start: 20250115, end: 20250115
  2. SUFENTANIL CITRATE [Suspect]
     Active Substance: SUFENTANIL CITRATE
     Indication: Induction of anaesthesia
     Dosage: FOA-INJECTION
     Route: 042
     Dates: start: 20250115, end: 20250115
  3. CEFUROXIME SODIUM [Suspect]
     Active Substance: CEFUROXIME SODIUM
     Indication: Prophylaxis
     Dosage: FOA-POWDER FOR INJECTION
     Route: 041
     Dates: start: 20250115, end: 20250115
  4. REMIMAZOLAM TOSYLATE [Suspect]
     Active Substance: REMIMAZOLAM TOSYLATE
     Indication: Induction of anaesthesia
     Dosage: FOA-POWDER FOR INJECTION
     Route: 042
     Dates: start: 20250115, end: 20250115
  5. ROCURONIUM BROMIDE [Suspect]
     Active Substance: ROCURONIUM BROMIDE
     Indication: Induction of anaesthesia
     Dosage: FOA-INJECTION
     Route: 042
     Dates: start: 20250115, end: 20250115
  6. SODIUM CHLORIDE [Concomitant]
     Active Substance: SODIUM CHLORIDE
     Indication: Vehicle solution use
     Dosage: FOA-INJECTION
     Route: 041
     Dates: start: 20250115, end: 20250115
  7. SODIUM CHLORIDE [Concomitant]
     Active Substance: SODIUM CHLORIDE
     Dosage: FOA-INJECTION
     Route: 042
     Dates: start: 20250115, end: 20250115

REACTIONS (2)
  - Anaphylactic shock [Recovered/Resolved]
  - Rash [Recovered/Resolved]

NARRATIVE: CASE EVENT DATE: 20250115
